FAERS Safety Report 16093178 (Version 1)
Quarter: 2019Q1

REPORT INFORMATION
  Report Type: Spontaneous
  Country: US (occurrence: US)
  Receive Date: 20190115
  Receipt Date: 20190115
  Transmission Date: 20190418
  Serious: Yes (Life-Threatening, Hospitalization, Other)
  Sender: FDA-Public Use
  Company Number: None

PATIENT
  Age: 60 Year
  Sex: Female
  Weight: 66.68 kg

DRUGS (3)
  1. LOVENOX [Suspect]
     Active Substance: ENOXAPARIN SODIUM
     Indication: ANTICOAGULANT THERAPY
     Route: 058
     Dates: start: 200904, end: 201508
  2. LOVENOX [Suspect]
     Active Substance: ENOXAPARIN SODIUM
     Indication: ANTICOAGULANT THERAPY
     Route: 058
     Dates: start: 201508, end: 201609
  3. WARFARIN [Concomitant]
     Active Substance: WARFARIN

REACTIONS (9)
  - Cardiac disorder [None]
  - Bronchial wall thickening [None]
  - Gastrointestinal haemorrhage [None]
  - Haemophilia [None]
  - Anaemia [None]
  - Fatigue [None]
  - Blood cholesterol increased [None]
  - Fluid retention [None]
  - Hyperkalaemia [None]

NARRATIVE: CASE EVENT DATE: 20090410
